FAERS Safety Report 25185434 (Version 1)
Quarter: 2025Q2

REPORT INFORMATION
  Report Type: Spontaneous
  Country: US (occurrence: US)
  Receive Date: 20250410
  Receipt Date: 20250410
  Transmission Date: 20250716
  Serious: Yes (Other)
  Sender: DR REDDYS
  Company Number: US-DRL-USA-USA/2025/04/005143

PATIENT
  Age: 60 Year
  Sex: Male

DRUGS (3)
  1. DABIGATRAN [Suspect]
     Active Substance: DABIGATRAN
     Indication: Cardiac ventricular thrombosis
  2. WARFARIN [Concomitant]
     Active Substance: WARFARIN
     Indication: Cardiac ventricular thrombosis
  3. APIXABAN [Concomitant]
     Active Substance: APIXABAN
     Indication: Cardiac ventricular thrombosis

REACTIONS (1)
  - Drug ineffective [Unknown]
